FAERS Safety Report 25252907 (Version 1)
Quarter: 2025Q2

REPORT INFORMATION
  Report Type: Spontaneous
  Country: US (occurrence: US)
  Receive Date: 20250429
  Receipt Date: 20250429
  Transmission Date: 20250717
  Serious: No
  Sender: JOHNSON AND JOHNSON
  Company Number: US-JNJFOC-20250419250

PATIENT
  Age: 6 Year
  Sex: Male

DRUGS (4)
  1. RISPERDAL M-TAB [Suspect]
     Active Substance: RISPERIDONE
     Indication: Aggression
     Route: 048
  2. RISPERDAL [Suspect]
     Active Substance: RISPERIDONE
     Indication: Irritability
     Route: 048
     Dates: start: 20100910
  3. RISPERDAL [Suspect]
     Active Substance: RISPERIDONE
     Indication: Affect lability
     Route: 048
     Dates: start: 20100917
  4. RISPERDAL [Suspect]
     Active Substance: RISPERIDONE
     Indication: Aggression

REACTIONS (2)
  - Off label use [Unknown]
  - Drug ineffective [Unknown]

NARRATIVE: CASE EVENT DATE: 20100917
